FAERS Safety Report 24287457 (Version 1)
Quarter: 2024Q3

REPORT INFORMATION
  Report Type: Spontaneous
  Country: IT (occurrence: IT)
  Receive Date: 20240905
  Receipt Date: 20240905
  Transmission Date: 20241017
  Serious: Yes (Life-Threatening, Hospitalization, Other)
  Sender: PFIZER
  Company Number: IT-PFIZER INC-PV202400115697

PATIENT
  Age: 66 Year
  Sex: Female

DRUGS (1)
  1. RITUXIMAB [Suspect]
     Active Substance: RITUXIMAB
     Indication: Lymphoma
     Dosage: UNK, CYCLIC

REACTIONS (3)
  - Acute kidney injury [Recovered/Resolved]
  - Anaphylactic reaction [Recovered/Resolved]
  - Thrombocytopenia [Recovered/Resolved]
